FAERS Safety Report 10483382 (Version 1)
Quarter: 2014Q3

REPORT INFORMATION
  Report Type: Report from Study
  Country: US (occurrence: US)
  Receive Date: 20140930
  Receipt Date: 20140930
  Transmission Date: 20150326
  Serious: Yes (Other)
  Sender: FDA-Public Use
  Company Number: US-ROCHE-1422176

PATIENT
  Sex: Female
  Weight: 48.3 kg

DRUGS (7)
  1. KEPPRA [Concomitant]
     Active Substance: LEVETIRACETAM
     Route: 048
  2. PREMARIN [Concomitant]
     Active Substance: ESTROGENS, CONJUGATED
     Route: 048
  3. RITALIN LA [Concomitant]
     Active Substance: METHYLPHENIDATE HYDROCHLORIDE
     Route: 048
  4. NUTROPIN AQ [Suspect]
     Active Substance: SOMATROPIN
     Indication: GROWTH HORMONE DEFICIENCY
     Route: 058
     Dates: start: 200708, end: 201402
  5. MUPIROCIN. [Concomitant]
     Active Substance: MUPIROCIN
     Indication: EPISTAXIS
     Route: 061
  6. VIACTIV [Concomitant]
     Active Substance: CALCIUM\VITAMIN D\VITAMIN K5
     Route: 065
  7. LEVOXYL [Concomitant]
     Active Substance: LEVOTHYROXINE SODIUM
     Route: 048

REACTIONS (11)
  - Arthralgia [Unknown]
  - Vaginal haemorrhage [Unknown]
  - Thrombocytopenia [Unknown]
  - Gingival bleeding [Unknown]
  - Insulin-like growth factor decreased [Unknown]
  - Temperature intolerance [Unknown]
  - Increased tendency to bruise [Unknown]
  - Fatigue [Unknown]
  - Joint swelling [Unknown]
  - Ecchymosis [Unknown]
  - Weight increased [Unknown]
